FAERS Safety Report 7796251-9 (Version None)
Quarter: 2011Q4

REPORT INFORMATION
  Report Type: 
  Country: None (occurrence: None)
  Receive Date: 20111004
  Receipt Date: 20110927
  Transmission Date: 20120403
  Serious: Yes (Hospitalization, Disabling, Other)
  Sender: FDA-Public Use
  Company Number: US-MERCK-1103USA01908

PATIENT
  Age: 61 Year
  Sex: Female

DRUGS (8)
  1. FOSAMAX [Suspect]
     Route: 048
     Dates: start: 19981201, end: 20080601
  2. FOSAMAX [Suspect]
     Indication: OSTEOPENIA
     Route: 048
     Dates: start: 19981201, end: 20080601
  3. FOSAMAX [Suspect]
     Route: 048
     Dates: start: 20080616, end: 20090301
  4. FOSAMAX [Suspect]
     Indication: OSTEOPOROSIS
     Route: 048
     Dates: start: 19981201, end: 20080601
  5. MULTIVITAMIN [Concomitant]
     Route: 065
     Dates: start: 19950101
  6. ALENDRONATE SODIUM [Suspect]
     Indication: OSTEOPOROSIS
     Route: 048
     Dates: start: 20080616, end: 20081202
  7. VITAMINS (UNSPECIFIED) [Concomitant]
     Route: 065
     Dates: start: 19950101
  8. FOSAMAX [Suspect]
     Route: 048
     Dates: start: 19981201, end: 20080601

REACTIONS (46)
  - FALL [None]
  - OSTEOPOROSIS [None]
  - ANXIETY [None]
  - NAUSEA [None]
  - GASTROOESOPHAGEAL REFLUX DISEASE [None]
  - OSTEOARTHRITIS [None]
  - MUSCULOSKELETAL PAIN [None]
  - PEPTIC ULCER [None]
  - COLONIC POLYP [None]
  - STRESS FRACTURE [None]
  - COUGH [None]
  - BLOOD CHOLESTEROL INCREASED [None]
  - BACK PAIN [None]
  - CALCIUM DEFICIENCY [None]
  - SINUSITIS [None]
  - TENDON RUPTURE [None]
  - ANIMAL BITE [None]
  - RADIUS FRACTURE [None]
  - STRESS [None]
  - EAR INFECTION [None]
  - HYPOAESTHESIA [None]
  - INFECTION [None]
  - LIGAMENT SPRAIN [None]
  - ARTHRALGIA [None]
  - CYST [None]
  - CONTUSION [None]
  - FRACTURE DELAYED UNION [None]
  - PNEUMONIA [None]
  - FEMUR FRACTURE [None]
  - URINARY TRACT INFECTION [None]
  - NECK PAIN [None]
  - CYSTITIS HAEMORRHAGIC [None]
  - HYPERLIPIDAEMIA [None]
  - DEPRESSION [None]
  - VITAMIN D DEFICIENCY [None]
  - SKIN LESION [None]
  - RADICULOPATHY [None]
  - ANAEMIA [None]
  - BONE DENSITY DECREASED [None]
  - HYPERSENSITIVITY [None]
  - FATIGUE [None]
  - PAIN IN EXTREMITY [None]
  - TENOSYNOVITIS [None]
  - RHINORRHOEA [None]
  - BRONCHIAL HYPERREACTIVITY [None]
  - BRONCHITIS [None]
